FAERS Safety Report 13754680 (Version 1)
Quarter: 2017Q3

REPORT INFORMATION
  Report Type: Spontaneous
  Country: US (occurrence: US)
  Receive Date: 20170714
  Receipt Date: 20170714
  Transmission Date: 20171127
  Serious: Yes (Other)
  Sender: FDA-Public Use
  Company Number: US-PFIZER INC-2017303217

PATIENT
  Age: 16 Year
  Sex: Male

DRUGS (9)
  1. EPINEPHRINE. [Suspect]
     Active Substance: EPINEPHRINE
     Dosage: 0.27 MG/KG, UNK
  2. METHYLPREDNISOLONE. [Concomitant]
     Active Substance: METHYLPREDNISOLONE
     Dosage: 40 MG, EVERY 6 HOURS
     Route: 042
  3. ALBUTEROL. [Concomitant]
     Active Substance: ALBUTEROL
     Dosage: 10 MG, PER HOUR CONTINUOUS INHALED
     Route: 055
  4. MAGNESIUM [Concomitant]
     Active Substance: MAGNESIUM
     Dosage: 15 MG/KG, PER HOUR
  5. AMINOPHYLLINE. [Concomitant]
     Active Substance: AMINOPHYLLINE
     Dosage: 6 MG/KG, BOLUS
  6. KETAMINE [Concomitant]
     Active Substance: KETAMINE
     Dosage: 2 MG/KG, PER HOUR
  7. MAGNESIUM [Concomitant]
     Active Substance: MAGNESIUM
     Dosage: 25 MG/KG, PER HOUR
  8. SEVOFLURANE. [Concomitant]
     Active Substance: SEVOFLURANE
     Indication: ANAESTHESIA
     Dosage: 2% WITH A FRESH GAS FLOW RATE OF 2 L/MIN
     Route: 045
  9. AMINOPHYLLINE. [Concomitant]
     Active Substance: AMINOPHYLLINE
     Dosage: INFUSION AT 0.5 MG/KG/H

REACTIONS (1)
  - Tachycardia [Unknown]
